FAERS Safety Report 4330168-7 (Version None)
Quarter: 2004Q2

REPORT INFORMATION
  Report Type: 
  Country: None (occurrence: None)
  Receive Date: 20040401
  Receipt Date: 20040322
  Transmission Date: 20050107
  Serious: No
  Sender: FDA-Public Use
  Company Number: 7697

PATIENT
  Sex: Male

DRUGS (1)
  1. CYTARABINE [Suspect]
     Dosage: 2 G/M2 FREQ
     Dates: end: 20040305

REACTIONS (1)
  - GUILLAIN-BARRE SYNDROME [None]
